FAERS Safety Report 16384348 (Version 1)
Quarter: 2019Q2

REPORT INFORMATION
  Report Type: Spontaneous
  Country: PT (occurrence: PT)
  Receive Date: 20190603
  Receipt Date: 20190603
  Transmission Date: 20190711
  Serious: Yes (Life-Threatening, Hospitalization, Other)
  Sender: FDA-Public Use
  Company Number: PT-BAUSCH-BL-2019-015554

PATIENT
  Age: 72 Year
  Sex: Female

DRUGS (6)
  1. METFORMIN/VILDAGLIPTIN [Suspect]
     Active Substance: METFORMIN\VILDAGLIPTIN
     Indication: PRODUCT USED FOR UNKNOWN INDICATION
     Dosage: 1000/50MG
     Route: 065
  2. METFORMIN [Suspect]
     Active Substance: METFORMIN HYDROCHLORIDE
     Indication: TYPE 2 DIABETES MELLITUS
     Route: 065
  3. IBANDRONIC ACID. [Concomitant]
     Active Substance: IBANDRONIC ACID
     Indication: PRODUCT USED FOR UNKNOWN INDICATION
     Route: 065
  4. PANTOPRAZOLE [Concomitant]
     Active Substance: PANTOPRAZOLE
     Indication: PRODUCT USED FOR UNKNOWN INDICATION
     Route: 065
  5. ROSUVASTATIN. [Concomitant]
     Active Substance: ROSUVASTATIN
     Indication: PRODUCT USED FOR UNKNOWN INDICATION
     Route: 065
  6. CLOPIDOGREL [Concomitant]
     Active Substance: CLOPIDOGREL BISULFATE
     Indication: PRODUCT USED FOR UNKNOWN INDICATION
     Route: 065

REACTIONS (14)
  - Acute kidney injury [Recovering/Resolving]
  - Myopathy [Unknown]
  - Iron deficiency anaemia [Unknown]
  - Transaminases increased [Recovered/Resolved]
  - Blood lactic acid increased [Recovered/Resolved]
  - Lactic acidosis [Recovered/Resolved]
  - Cystitis [Unknown]
  - Condition aggravated [Recovered/Resolved]
  - Rhabdomyolysis [Unknown]
  - Hypokinesia [Unknown]
  - Deep vein thrombosis [Unknown]
  - Hypoglycaemia [Unknown]
  - Pulmonary embolism [Unknown]
  - Acute myocardial infarction [Unknown]
